FAERS Safety Report 7299556-3 (Version None)
Quarter: 2011Q1

REPORT INFORMATION
  Report Type: 
  Country: None (occurrence: None)
  Receive Date: 20110217
  Receipt Date: 20110211
  Transmission Date: 20110831
  Serious: Yes (Congenital Anomaly)
  Sender: FDA-Public Use
  Company Number: GB-PFIZER INC-2010070306

PATIENT
  Sex: Female
  Weight: 3.46 kg

DRUGS (5)
  1. FOLIC ACID [Suspect]
     Indication: PREGNANCY
     Dosage: 1 DF, 1X/DAY
     Route: 064
     Dates: start: 20090501
  2. LYRICA [Suspect]
     Indication: PAIN
     Dosage: 2 DF, 2X/DAY
     Route: 064
     Dates: start: 20080815
  3. OMEPRAZOLE [Suspect]
     Indication: PROPHYLAXIS AGAINST GASTROINTESTINAL ULCER
     Dosage: 20 MG, 1X/DAY
     Route: 064
     Dates: start: 20081016
  4. CO-CODAMOL [Suspect]
     Indication: PAIN
     Dosage: 30/500, 2 TABLETS AS NEEDED
     Route: 064
     Dates: start: 20090106
  5. HYDROXOCOBALAMIN [Suspect]
     Indication: VITAMIN B12 DEFICIENCY
     Dosage: 3 DF, MONTHLY
     Route: 064
     Dates: start: 20091216

REACTIONS (3)
  - HIP DYSPLASIA [None]
  - DRUG EXPOSURE DURING PREGNANCY [None]
  - PELVIC DEFORMITY [None]
